FAERS Safety Report 16163351 (Version 1)
Quarter: 2019Q2

REPORT INFORMATION
  Report Type: Spontaneous
  Country: DE (occurrence: DE)
  Receive Date: 20190405
  Receipt Date: 20190405
  Transmission Date: 20190711
  Serious: Yes (Hospitalization)
  Sender: FDA-Public Use
  Company Number: DE-ELI_LILLY_AND_COMPANY-DE201904001156

PATIENT
  Age: 51 Year
  Sex: Female

DRUGS (8)
  1. DIAZEPAM. [Suspect]
     Active Substance: DIAZEPAM
     Indication: NEUROSIS
     Dosage: 150 MG, UNKNOWN
     Route: 048
     Dates: start: 20030217, end: 20030217
  2. AKINETON [Suspect]
     Active Substance: BIPERIDEN HYDROCHLORIDE
     Indication: NEUROSIS
     Dosage: 38 MG, UNKNOWN
     Route: 048
     Dates: start: 20030217, end: 20030217
  3. OLANZAPINE. [Suspect]
     Active Substance: OLANZAPINE
     Indication: NEUROSIS
     Dosage: 10 MG, UNKNOWN
     Route: 048
     Dates: start: 20030217, end: 20030217
  4. CLOZAPINE. [Concomitant]
     Active Substance: CLOZAPINE
     Indication: NEUROSIS
     Dosage: 4 G, UNKNOWN
     Route: 048
     Dates: start: 20030217, end: 20030217
  5. PARSTELIN [Suspect]
     Active Substance: ACETAMINOPHEN
     Indication: NEUROSIS
     Dosage: 16 DOSAGE FORM, UNKNOWN
     Route: 048
     Dates: start: 20030217, end: 20030217
  6. PROTHIPENDYL HYDROCHLORIDE [Suspect]
     Active Substance: PROTHIPENDYL HYDROCHLORIDE
     Indication: NEUROSIS
     Dosage: 1.6 G, UNKNOWN
     Route: 048
     Dates: start: 20030217, end: 20030217
  7. CLONAZEPAM. [Suspect]
     Active Substance: CLONAZEPAM
     Indication: NEUROSIS
     Dosage: 15 MG, UNKNOWN
     Route: 048
     Dates: start: 20030217, end: 20030217
  8. SERTRALINE HYDROCHLORIDE. [Suspect]
     Active Substance: SERTRALINE HYDROCHLORIDE
     Indication: NEUROSIS
     Dosage: 500 MG, UNKNOWN
     Route: 048
     Dates: start: 20030217, end: 20030217

REACTIONS (6)
  - Respiratory failure [Recovered/Resolved]
  - Coma [Recovered/Resolved]
  - Mydriasis [Recovered/Resolved]
  - Salivary hypersecretion [Recovered/Resolved]
  - Pneumonia aspiration [Recovered/Resolved]
  - Suicide attempt [Recovered/Resolved]

NARRATIVE: CASE EVENT DATE: 2003
